FAERS Safety Report 9884959 (Version 2)
Quarter: 2014Q2

REPORT INFORMATION
  Report Type: Spontaneous
  Country: US (occurrence: US)
  Receive Date: 20140210
  Receipt Date: 20140512
  Transmission Date: 20141212
  Serious: Yes (Hospitalization, Other)
  Sender: FDA-Public Use
  Company Number: US-BAYER-2014-018893

PATIENT
  Age: 23 Year
  Sex: Female
  Weight: 64.4 kg

DRUGS (2)
  1. MIRENA [Suspect]
     Dosage: 20 MCG/24HR, CONT
     Route: 015
     Dates: start: 20110721
  2. MIRENA [Suspect]
     Dosage: 24 MCG/24HR, CONT
     Route: 015
     Dates: start: 20110628, end: 20110728

REACTIONS (7)
  - Uterine perforation [None]
  - Device use error [None]
  - Injury [None]
  - Groin pain [None]
  - Abdominal pain [None]
  - Genital haemorrhage [None]
  - Anxiety [None]
